FAERS Safety Report 12416798 (Version 1)
Quarter: 2016Q2

REPORT INFORMATION
  Report Type: Spontaneous
  Country: US (occurrence: US)
  Receive Date: 20160530
  Receipt Date: 20160530
  Transmission Date: 20160815
  Serious: Yes (Other)
  Sender: FDA-Public Use
  Company Number: US-PFIZER INC-2016276854

PATIENT
  Age: 44 Year
  Sex: Female
  Weight: 46.27 kg

DRUGS (7)
  1. SKELAXIN [Suspect]
     Active Substance: METAXALONE
     Indication: HYPOTONIA
     Dosage: 800MG 1 TABLET ONCE DAILY AS NEEDED
     Route: 048
     Dates: start: 1988
  2. DOXEPIN [Concomitant]
     Active Substance: DOXEPIN
     Indication: NEUROMA
     Dosage: 10MG UP TO 3 TIMES A DAY
     Dates: start: 1988
  3. DIFLUCAN [Concomitant]
     Active Substance: FLUCONAZOLE
     Indication: FUNGAL INFECTION
     Dosage: 200MG PER DAY
     Dates: start: 201604
  4. SYNTHROID [Concomitant]
     Active Substance: LEVOTHYROXINE SODIUM
     Indication: THYROID DISORDER
     Dosage: 75 UG ONCE DAILY
     Dates: start: 200402
  5. CHLOR-TRIMETON [Concomitant]
     Active Substance: CHLORPHENIRAMINE MALEATE
     Indication: HYPERSENSITIVITY
     Dosage: 4MG TABLET ONCE EVERY 4 HOURS
  6. CEFTIN [Concomitant]
     Active Substance: CEFUROXIME AXETIL
     Indication: URINARY TRACT INFECTION
     Dosage: 250MG TWICE PER DAY
     Dates: start: 201605
  7. SECTRAL [Concomitant]
     Active Substance: ACEBUTOLOL HYDROCHLORIDE
     Indication: HYPERTENSION
     Dosage: 1200MG EVERY OTHER DAY

REACTIONS (12)
  - Road traffic accident [Unknown]
  - Post-traumatic neck syndrome [Recovering/Resolving]
  - Intentional product misuse [Unknown]
  - Lyme disease [Unknown]
  - Intentional product use issue [Not Recovered/Not Resolved]
  - Musculoskeletal pain [Not Recovered/Not Resolved]
  - Respiratory arrest [Unknown]
  - Dysphagia [Not Recovered/Not Resolved]
  - Weight decreased [Recovered/Resolved]
  - Drug dose omission [Not Recovered/Not Resolved]
  - Thyroid disorder [Not Recovered/Not Resolved]
  - Wrong technique in product usage process [Not Recovered/Not Resolved]

NARRATIVE: CASE EVENT DATE: 1988
